FAERS Safety Report 12969449 (Version 1)
Quarter: 2016Q4

REPORT INFORMATION
  Report Type: Spontaneous
  Country: DK (occurrence: DK)
  Receive Date: 20161123
  Receipt Date: 20161123
  Transmission Date: 20170207
  Serious: Yes (Hospitalization)
  Sender: FDA-Public Use
  Company Number: DK-ABBVIE-16P-044-1790037-00

PATIENT
  Sex: Female

DRUGS (3)
  1. ZONEGRAN (ZONISAMIDE) [Concomitant]
     Indication: PRODUCT USED FOR UNKNOWN INDICATION
     Dates: start: 2010
  2. DEPAKINE [Suspect]
     Active Substance: VALPROATE SODIUM
     Indication: EPILEPSY
     Route: 065
     Dates: start: 2010, end: 201508
  3. DELEPSINE [Suspect]
     Active Substance: DIVALPROEX SODIUM
     Indication: EPILEPSY
     Route: 065
     Dates: start: 1977, end: 2010

REACTIONS (8)
  - General physical health deterioration [Unknown]
  - Anxiety [Unknown]
  - Poor personal hygiene [Unknown]
  - Tremor [Unknown]
  - Depression [Unknown]
  - Memory impairment [Unknown]
  - Hypersomnia [Unknown]
  - Dyspnoea [Unknown]
